FAERS Safety Report 7978224-6 (Version None)
Quarter: 2011Q4

REPORT INFORMATION
  Report Type: 
  Country: None (occurrence: None)
  Receive Date: 20111209
  Receipt Date: 20111128
  Transmission Date: 20120403
  Serious: Yes (Hospitalization)
  Sender: FDA-Public Use
  Company Number: DSA_48345_2011

PATIENT
  Age: 44 Year
  Sex: Male

DRUGS (7)
  1. GARDENAL /00023201/ [Concomitant]
  2. PIPERACILLIN AND TAZOBACTAM [Concomitant]
  3. ZOVIRAX [Suspect]
     Indication: PRODUCT USED FOR UNKNOWN INDICATION
     Dosage: 1.8 G QD
     Dates: start: 20110401, end: 20110405
  4. ALEPSAL [Concomitant]
  5. LINEZOLID [Concomitant]
  6. CIPROFLOXACIN [Concomitant]
  7. DEPAKENE [Concomitant]

REACTIONS (7)
  - ALKALOSIS [None]
  - HYPONATRAEMIA [None]
  - MORGANELLA TEST POSITIVE [None]
  - PROSTATITIS [None]
  - TUBULOINTERSTITIAL NEPHRITIS [None]
  - RENAL TUBULAR DISORDER [None]
  - POLYURIA [None]
